FAERS Safety Report 18140532 (Version 1)
Quarter: 2020Q3

REPORT INFORMATION
  Report Type: Spontaneous
  Country: US (occurrence: US)
  Receive Date: 20200812
  Receipt Date: 20200812
  Transmission Date: 20201103
  Serious: Yes (Other)
  Sender: FDA-Public Use
  Company Number: US-PFIZER INC-2020307135

PATIENT
  Age: 81 Year
  Sex: Male

DRUGS (2)
  1. METFORMIN [Concomitant]
     Active Substance: METFORMIN HYDROCHLORIDE
     Indication: DIABETES MELLITUS
  2. VYNDAMAX [Suspect]
     Active Substance: TAFAMIDIS
     Dosage: AT NOON

REACTIONS (2)
  - Diabetes mellitus [Unknown]
  - Blood glucose decreased [Unknown]
